FAERS Safety Report 10145057 (Version 4)
Quarter: 2014Q4

REPORT INFORMATION
  Report Type: Spontaneous
  Country: IT (occurrence: IT)
  Receive Date: 20140501
  Receipt Date: 20141022
  Transmission Date: 20150528
  Serious: Yes (Hospitalization)
  Sender: FDA-Public Use
  Company Number: IT-AMGEN-ITASP2014030251

PATIENT
  Age: 76 Year
  Sex: Male

DRUGS (11)
  1. ACICLOVIR [Suspect]
     Active Substance: ACYCLOVIR
     Indication: CHEMOTHERAPY
     Dosage: 800 MG, 1 IN 1 D
     Route: 048
     Dates: start: 20140210, end: 20140316
  2. LEVOXACIN [Suspect]
     Active Substance: LEVOFLOXACIN
     Indication: CHEMOTHERAPY
     Dosage: 500 MG , 1 IN 1 D
     Route: 048
     Dates: start: 20140210, end: 20140220
  3. BORTEZOMIB [Suspect]
     Active Substance: BORTEZOMIB
     Dosage: 2.4 MG, 1 IN 1 CYCLICAL
     Route: 065
     Dates: start: 20140310
  4. CARDIOASPIRIN [Concomitant]
     Active Substance: ASPIRIN
     Dosage: 100 MG, UNK
  5. ALKERAN [Suspect]
     Active Substance: MELPHALAN
     Indication: PLASMA CELL MYELOMA
     Dosage: 16 MG, 1 IN 1 D
     Route: 048
     Dates: start: 20140212, end: 20140215
  6. RAMIPRIL. [Concomitant]
     Active Substance: RAMIPRIL
     Dosage: 10 MG, UNK
  7. LASIX [Concomitant]
     Active Substance: FUROSEMIDE
     Dosage: 25 MG, UNK
  8. FILGRASTIM [Suspect]
     Active Substance: FILGRASTIM
     Indication: CHEMOTHERAPY
     Dosage: 30 IU, DAILY (1 IN 1 D)
     Route: 058
     Dates: start: 20140217, end: 20140221
  9. BACTRIM [Suspect]
     Active Substance: SULFAMETHOXAZOLE\TRIMETHOPRIM
     Indication: CHEMOTHERAPY
     Dosage: 2 TABLETS DAILY TWICE A WEEK (2 DF, 1 IN 1 CYCLICAL)
     Route: 048
     Dates: start: 20140210, end: 20140310
  10. BORTEZOMIB [Suspect]
     Active Substance: BORTEZOMIB
     Indication: PLASMA CELL MYELOMA
     Dosage: 2.4 MG, 1 IN 1 CYCLICAL
     Route: 065
     Dates: start: 20140210
  11. BORTEZOMIB [Suspect]
     Active Substance: BORTEZOMIB
     Dosage: 2.4 MG, 1 IN 1 CYCLICAL
     Route: 065
     Dates: start: 20140313

REACTIONS (5)
  - Rash maculo-papular [Recovering/Resolving]
  - Erythema [Recovering/Resolving]
  - Pruritus [Recovering/Resolving]
  - Periorbital oedema [Recovering/Resolving]
  - Urticaria [Recovering/Resolving]

NARRATIVE: CASE EVENT DATE: 2014
